FAERS Safety Report 20191191 (Version 2)
Quarter: 2021Q4

REPORT INFORMATION
  Report Type: Spontaneous
  Country: US (occurrence: US)
  Receive Date: 20211216
  Receipt Date: 20211224
  Transmission Date: 20220303
  Serious: No
  Sender: FDA-Public Use
  Company Number: US-GLAXOSMITHKLINE-USCH2021088822

PATIENT
  Age: 74 Year
  Sex: Female

DRUGS (1)
  1. ADVIL [Suspect]
     Active Substance: IBUPROFEN
     Indication: Product used for unknown indication
     Dosage: UNK
     Dates: start: 20211210, end: 20211210

REACTIONS (3)
  - Limb injury [Recovering/Resolving]
  - Wrong technique in product usage process [Recovering/Resolving]
  - Product complaint [Unknown]
